FAERS Safety Report 5001899-0 (Version None)
Quarter: 2006Q2

REPORT INFORMATION
  Report Type: 
  Country: None (occurrence: None)
  Receive Date: 20060515
  Receipt Date: 20050315
  Transmission Date: 20061013
  Serious: Yes (Hospitalization, Disabling)
  Sender: FDA-Public Use
  Company Number: US-MERCK-0503USA03159

PATIENT
  Age: 58 Year
  Sex: Female
  Weight: 95 kg

DRUGS (4)
  1. VIOXX [Suspect]
     Indication: INFLAMMATION
     Route: 048
     Dates: start: 20000101, end: 20040901
  2. DIURETIC (UNSPECIFIED) [Concomitant]
     Route: 065
  3. VICODIN [Concomitant]
     Route: 065
  4. POTASSIUM (UNSPECIFIED) [Concomitant]
     Route: 065

REACTIONS (23)
  - ABSCESS LIMB [None]
  - ARTERIOSCLEROSIS CORONARY ARTERY [None]
  - ARTHRITIS [None]
  - ATELECTASIS [None]
  - CARDIOMEGALY [None]
  - CARPAL TUNNEL SYNDROME [None]
  - CELLULITIS [None]
  - CHEST PAIN [None]
  - CHRONIC OBSTRUCTIVE PULMONARY DISEASE [None]
  - DIABETES MELLITUS NON-INSULIN-DEPENDENT [None]
  - DIARRHOEA [None]
  - EMPHYSEMA [None]
  - HEART RATE IRREGULAR [None]
  - HYPERTENSION [None]
  - INFECTION [None]
  - LIMB INJURY [None]
  - MUSCLE SWELLING [None]
  - OBESITY [None]
  - PNEUMONIA [None]
  - RENAL FAILURE [None]
  - SKIN GRAFT [None]
  - SKIN ULCER [None]
  - SLEEP APNOEA SYNDROME [None]
